FAERS Safety Report 19448845 (Version 1)
Quarter: 2021Q2

REPORT INFORMATION
  Report Type: Spontaneous
  Country: US (occurrence: US)
  Receive Date: 20210622
  Receipt Date: 20210622
  Transmission Date: 20210717
  Serious: No
  Sender: FDA-Public Use
  Company Number: US-ASTRAZENECA-2021A525327

PATIENT
  Sex: Male

DRUGS (2)
  1. XELJANZ [Suspect]
     Active Substance: TOFACITINIB CITRATE
     Dosage: 10.0MG UNKNOWN
     Route: 048
     Dates: start: 20210115
  2. QUETIAPINE. [Suspect]
     Active Substance: QUETIAPINE
     Indication: ANXIETY
     Route: 048

REACTIONS (3)
  - Haematochezia [Unknown]
  - Bowel movement irregularity [Unknown]
  - Colitis ulcerative [Not Recovered/Not Resolved]
